FAERS Safety Report 15487244 (Version 1)
Quarter: 2018Q4

REPORT INFORMATION
  Report Type: Spontaneous
  Country: US (occurrence: US)
  Receive Date: 20181011
  Receipt Date: 20181011
  Transmission Date: 20190205
  Serious: Yes (Hospitalization)
  Sender: FDA-Public Use
  Company Number: None

PATIENT
  Age: 37 Year
  Sex: Female
  Weight: 69.75 kg

DRUGS (2)
  1. DULOXETINE HCL EC 30MG CAP [Suspect]
     Active Substance: DULOXETINE
     Indication: RADICULAR PAIN
     Dosage: ?          QUANTITY:1 CAPSULE(S);?
     Route: 048
  2. DULOXIETINE 60MG [Suspect]
     Active Substance: DULOXETINE

REACTIONS (7)
  - Product complaint [None]
  - Impaired gastric emptying [None]
  - Constipation [None]
  - Flat affect [None]
  - Drug ineffective [None]
  - Withdrawal syndrome [None]
  - Fatigue [None]

NARRATIVE: CASE EVENT DATE: 20181004
